FAERS Safety Report 12734248 (Version 1)
Quarter: 2016Q3

REPORT INFORMATION
  Report Type: Spontaneous
  Country: US (occurrence: US)
  Receive Date: 20160912
  Receipt Date: 20160912
  Transmission Date: 20161109
  Serious: Yes (Other)
  Sender: FDA-Public Use
  Company Number: None

PATIENT
  Age: 65 Year
  Sex: Female
  Weight: 90.72 kg

DRUGS (5)
  1. VITAMIN B [Concomitant]
     Active Substance: VITAMIN B
  2. PROBIOTIC [Concomitant]
     Active Substance: PROBIOTICS NOS
  3. ALPRAZOLAM. [Concomitant]
     Active Substance: ALPRAZOLAM
  4. LEVOFLOXACIN. [Suspect]
     Active Substance: LEVOFLOXACIN
  5. VITAMIN D [Concomitant]
     Active Substance: CHOLECALCIFEROL

REACTIONS (6)
  - Movement disorder [None]
  - Arthralgia [None]
  - Musculoskeletal stiffness [None]
  - Exercise tolerance decreased [None]
  - Pain in extremity [None]
  - Middle insomnia [None]

NARRATIVE: CASE EVENT DATE: 20160702
